FAERS Safety Report 9516312 (Version 1)
Quarter: 2013Q3

REPORT INFORMATION
  Report Type: Spontaneous
  Country: CA (occurrence: None)
  Receive Date: 20130909
  Receipt Date: 20130909
  Transmission Date: 20140515
  Serious: Yes (Hospitalization, Other)
  Sender: FDA-Public Use
  Company Number: NSR_01241_2013

PATIENT
  Age: 55 Year
  Sex: Female

DRUGS (2)
  1. TRAMADOL HYDROCHLORIDE [Suspect]
     Indication: ANALGESIC THERAPY
     Dosage: 100 MG BID A FEW DAYS
  2. CEFTRIAXONE [Concomitant]

REACTIONS (3)
  - Aggression [None]
  - Delirium [None]
  - Hallucination, visual [None]
